FAERS Safety Report 9063587 (Version 1)
Quarter: 2013Q1

REPORT INFORMATION
  Report Type: Spontaneous
  Country: BR (occurrence: BR)
  Receive Date: 20130213
  Receipt Date: 20130213
  Transmission Date: 20140127
  Serious: Yes (Other)
  Sender: FDA-Public Use
  Company Number: BR-SANOFI-AVENTIS-2013SA011131

PATIENT
  Age: 56 Year
  Sex: Male

DRUGS (10)
  1. ARAVA [Suspect]
     Indication: RHEUMATOID ARTHRITIS
     Route: 048
     Dates: start: 2003, end: 201212
  2. ARAVA [Suspect]
     Indication: RHEUMATOID ARTHRITIS
     Route: 048
     Dates: start: 201212
  3. ETANERCEPT [Suspect]
     Indication: RHEUMATOID ARTHRITIS
     Route: 058
     Dates: start: 2010, end: 201212
  4. ETANERCEPT [Suspect]
     Indication: RHEUMATOID ARTHRITIS
     Route: 058
     Dates: start: 201212
  5. INSULIN [Concomitant]
     Indication: DIABETES MELLITUS
  6. METFORMIN [Concomitant]
     Indication: DIABETES MELLITUS
  7. ATENOLOL [Concomitant]
     Indication: HYPERTENSION
  8. ALISKIREN [Concomitant]
     Indication: HYPERTENSION
  9. ATENSINA [Concomitant]
     Indication: HYPERTENSION
  10. AMITRIPTYLINE [Concomitant]

REACTIONS (10)
  - Necrosis [Unknown]
  - Feeling abnormal [Unknown]
  - Back pain [Unknown]
  - Hypersensitivity [Unknown]
  - Pharyngeal disorder [Unknown]
  - Dyspnoea [Unknown]
  - Dyspnoea [Unknown]
  - Pneumonia [Unknown]
  - Dyspnoea [Unknown]
  - Hypertension [Unknown]
